FAERS Safety Report 8488865-8 (Version None)
Quarter: 2012Q3

REPORT INFORMATION
  Report Type: 
  Country: None (occurrence: None)
  Receive Date: 20120705
  Receipt Date: 20120627
  Transmission Date: 20120928
  Serious: Yes (Other)
  Sender: FDA-Public Use
  Company Number: GB-ROCHE-1083000

PATIENT
  Sex: Male

DRUGS (2)
  1. CLONAZEPAM [Suspect]
     Indication: AGITATION
  2. CLONAZEPAM [Suspect]
     Indication: ANXIETY

REACTIONS (1)
  - MENTAL DISORDER [None]
